FAERS Safety Report 8192285-3 (Version None)
Quarter: 2012Q1

REPORT INFORMATION
  Report Type: 
  Country: None (occurrence: None)
  Receive Date: 20120307
  Receipt Date: 20120227
  Transmission Date: 20120608
  Serious: Yes (Hospitalization)
  Sender: FDA-Public Use
  Company Number: US-ASTRAZENECA-2012SE06831

PATIENT
  Age: 71 Year
  Sex: Female
  Weight: 85.3 kg

DRUGS (8)
  1. CYMBALTA [Concomitant]
     Route: 048
  2. CRESTOR [Suspect]
     Indication: HYPERLIPIDAEMIA
     Route: 048
     Dates: start: 20110722, end: 20111213
  3. XANAX [Concomitant]
     Route: 048
  4. ASPIRIN [Concomitant]
     Route: 048
  5. IMDUR [Concomitant]
     Route: 048
  6. RISPERIDONE [Concomitant]
     Route: 048
  7. BISOPROLOL FUMARATE [Concomitant]
     Route: 048
  8. PLAVIX [Concomitant]
     Route: 048

REACTIONS (24)
  - PARAPLEGIA [None]
  - ANXIETY [None]
  - DIVERTICULUM [None]
  - BALANCE DISORDER [None]
  - HEPATIC ENZYME INCREASED [None]
  - PANIC ATTACK [None]
  - OSTEOARTHRITIS [None]
  - RHABDOMYOLYSIS [None]
  - DYSPHONIA [None]
  - FALL [None]
  - URINARY INCONTINENCE [None]
  - CORONARY ARTERY DISEASE [None]
  - FLAT AFFECT [None]
  - SPINAL OSTEOARTHRITIS [None]
  - NECK PAIN [None]
  - ARTHRALGIA [None]
  - ASPARTATE AMINOTRANSFERASE INCREASED [None]
  - CATARACT [None]
  - PALPITATIONS [None]
  - BACK PAIN [None]
  - COORDINATION ABNORMAL [None]
  - SPINAL COLUMN STENOSIS [None]
  - CONSTIPATION [None]
  - ALANINE AMINOTRANSFERASE INCREASED [None]
